FAERS Safety Report 8011171-2 (Version None)
Quarter: 2011Q4

REPORT INFORMATION
  Report Type: 
  Country: None (occurrence: None)
  Receive Date: 20111228
  Receipt Date: 20111214
  Transmission Date: 20120403
  Serious: Yes (Other)
  Sender: FDA-Public Use
  Company Number: ES-WATSON-2011-21371

PATIENT
  Age: 64 Year
  Sex: Male

DRUGS (2)
  1. RISPERIDONE [Suspect]
     Indication: MAJOR DEPRESSION
     Dosage: 2 MG DAILY
  2. FLUOXETINE HCL [Suspect]
     Indication: DEPRESSION
     Dosage: 20 MG DAILY

REACTIONS (2)
  - HEPATITIS CHOLESTATIC [None]
  - INHIBITORY DRUG INTERACTION [None]
